FAERS Safety Report 5608363-6 (Version None)
Quarter: 2008Q1

REPORT INFORMATION
  Report Type: 
  Country: None (occurrence: None)
  Receive Date: 20080130
  Receipt Date: 20080121
  Transmission Date: 20080703
  Serious: Yes (Hospitalization)
  Sender: FDA-Public Use
  Company Number: US-ELI_LILLY_AND_COMPANY-US200801004576

PATIENT
  Sex: Female

DRUGS (3)
  1. FORTEO [Suspect]
     Indication: OSTEOPOROSIS
     Route: 058
  2. TIAZAC [Concomitant]
     Dosage: 180 UNK, 2/D
  3. DEMADEX [Concomitant]
     Dosage: 20 MG, DAILY (1/D)

REACTIONS (1)
  - MYOCARDIAL INFARCTION [None]
